FAERS Safety Report 7369035-3 (Version None)
Quarter: 2011Q1

REPORT INFORMATION
  Report Type: 
  Country: None (occurrence: None)
  Receive Date: 20110323
  Receipt Date: 20110317
  Transmission Date: 20110831
  Serious: Yes (Other)
  Sender: FDA-Public Use
  Company Number: FR-PFIZER INC-2011059559

PATIENT
  Age: 64 Year
  Sex: Female

DRUGS (3)
  1. CYMBALTA [Concomitant]
     Dosage: UNK
  2. RIVOTRIL [Concomitant]
     Dosage: UNK
  3. LYRICA [Suspect]
     Indication: POST PROCEDURAL FISTULA
     Dosage: 150 MG, 1X/DAY

REACTIONS (8)
  - SCOLIOSIS [None]
  - MUSCLE ATROPHY [None]
  - PAIN IN EXTREMITY [None]
  - BURNING SENSATION [None]
  - BODY HEIGHT DECREASED [None]
  - BACK PAIN [None]
  - WEIGHT INCREASED [None]
  - PAIN [None]
